FAERS Safety Report 4421237-1 (Version None)
Quarter: 2004Q3

REPORT INFORMATION
  Report Type: 
  Country: None (occurrence: None)
  Receive Date: 20040707
  Receipt Date: 20040505
  Transmission Date: 20050211
  Serious: No
  Sender: FDA-Public Use
  Company Number: SU-2004-002344

PATIENT
  Age: 32 Year
  Sex: Female
  Weight: 113.3993 kg

DRUGS (5)
  1. BENICAR HCT [Suspect]
     Indication: HYPERTENSION
     Dosage: 40.125 MG QD PO
     Route: 048
     Dates: start: 20040310
  2. TENORMIN [Concomitant]
  3. HYDROCHLOROTHIAZIDE [Concomitant]
  4. POTASSIUM [Concomitant]
  5. FIORICET [Concomitant]

REACTIONS (1)
  - URETHRAL PAIN [None]
